FAERS Safety Report 7242214-1 (Version None)
Quarter: 2011Q1

REPORT INFORMATION
  Report Type: 
  Country: None (occurrence: None)
  Receive Date: 20110124
  Receipt Date: 20110120
  Transmission Date: 20110831
  Serious: Yes (Death)
  Sender: FDA-Public Use
  Company Number: FR-ABBOTT-11P-056-0699436-00

PATIENT
  Age: 4 Year
  Sex: Female
  Weight: 15 kg

DRUGS (3)
  1. SEVOFLURANE [Suspect]
     Indication: ANAESTHESIA
  2. DEXTROSE IN WATER [Suspect]
     Indication: PRODUCT USED FOR UNKNOWN INDICATION
     Route: 042
  3. SUFENTANIL [Concomitant]
     Indication: ANAESTHESIA

REACTIONS (1)
  - HYPONATRAEMIA [None]
